FAERS Safety Report 11363024 (Version 2)
Quarter: 2015Q3

REPORT INFORMATION
  Report Type: Report from Study
  Country: DE (occurrence: DE)
  Receive Date: 20150810
  Receipt Date: 20150813
  Transmission Date: 20151125
  Serious: Yes (Death, Hospitalization, Other)
  Sender: FDA-Public Use
  Company Number: DE-GILEAD-2015-0161262AA

PATIENT
  Age: 52 Year
  Sex: Female
  Weight: 72 kg

DRUGS (5)
  1. LEDIPASVIR/SOFOSBUVIR [Suspect]
     Active Substance: LEDIPASVIR\SOFOSBUVIR
     Indication: CHRONIC HEPATITIS C
     Dosage: 1 DF, QD
     Route: 048
     Dates: start: 20150127, end: 20150711
  2. FUROSEMID                          /00032601/ [Suspect]
     Active Substance: FUROSEMIDE
     Indication: ASCITES
     Dosage: 40 MG, QD
     Route: 048
     Dates: start: 20150618, end: 20150711
  3. AMISULPRID [Suspect]
     Active Substance: AMISULPRIDE
     Indication: MENTAL DISORDER
     Dosage: 200 MG, QD
     Route: 048
     Dates: start: 20150618, end: 20150711
  4. ALPRAZOLAM. [Suspect]
     Active Substance: ALPRAZOLAM
     Indication: MENTAL DISORDER
     Dosage: 1 MG, QD
     Route: 048
     Dates: start: 20150626, end: 20150711
  5. VITAMIN K [Suspect]
     Active Substance: PHYTONADIONE
     Indication: PRODUCT USED FOR UNKNOWN INDICATION
     Dosage: UNK
     Route: 048
     Dates: start: 20150618, end: 20150711

REACTIONS (7)
  - Puncture site haemorrhage [Unknown]
  - Subacute hepatic failure [Fatal]
  - Haematemesis [Unknown]
  - Haematoma [Unknown]
  - Fatigue [Fatal]
  - Coma [Fatal]
  - Tongue haemorrhage [Fatal]

NARRATIVE: CASE EVENT DATE: 20150324
